FAERS Safety Report 4654528-X (Version None)
Quarter: 2005Q2

REPORT INFORMATION
  Report Type: 
  Country: None (occurrence: None)
  Receive Date: 20050503
  Receipt Date: 20050503
  Transmission Date: 20051028
  Serious: No
  Sender: FDA-Public Use
  Company Number: None

PATIENT
  Age: 79 Year
  Sex: Male
  Weight: 91.6266 kg

DRUGS (2)
  1. EZETIMIBE 10 MG MERCK [Suspect]
     Indication: CORONARY ARTERY DISEASE
     Dosage: 10 MG DAILY ORAL
     Route: 048
     Dates: start: 20040429, end: 20051115
  2. EZETIMIBE 10 MG MERCK [Suspect]
     Indication: HYPERCHOLESTEROLAEMIA
     Dosage: 10 MG DAILY ORAL
     Route: 048
     Dates: start: 20040429, end: 20051115

REACTIONS (1)
  - LICHENIFICATION [None]
